FAERS Safety Report 7759797-5 (Version None)
Quarter: 2011Q3

REPORT INFORMATION
  Report Type: 
  Country: None (occurrence: None)
  Receive Date: 20110915
  Receipt Date: 20110909
  Transmission Date: 20111222
  Serious: Yes (Hospitalization)
  Sender: FDA-Public Use
  Company Number: 2011SP040504

PATIENT
  Age: 22 Year
  Sex: Female

DRUGS (8)
  1. ABILIFY [Suspect]
     Indication: PRODUCT USED FOR UNKNOWN INDICATION
     Dosage: 30 MG;QAM;PO 15 DF;QAM
     Route: 048
     Dates: start: 20110620
  2. ABILIFY [Suspect]
     Indication: PRODUCT USED FOR UNKNOWN INDICATION
     Dosage: 30 MG;QAM;PO 15 DF;QAM
     Route: 048
     Dates: start: 20110615, end: 20110619
  3. ZYPREXA [Suspect]
     Indication: SCHIZOPHRENIA
     Dosage: 20 MG;QPM;PO
     Route: 048
     Dates: start: 20110620
  4. MIRTAZAPINE [Suspect]
     Indication: PRODUCT USED FOR UNKNOWN INDICATION
     Dosage: PO  30 MG;QD
     Route: 048
     Dates: start: 20110607, end: 20110803
  5. MIRTAZAPINE [Suspect]
     Indication: PRODUCT USED FOR UNKNOWN INDICATION
     Dosage: PO  30 MG;QD
     Route: 048
     Dates: start: 20110726
  6. ESCITALOPRAM OXALATE [Concomitant]
  7. ESCITALOPRAM OXALATE [Concomitant]
  8. TRAMADOL HCL [Concomitant]

REACTIONS (4)
  - PYREXIA [None]
  - HEPATITIS CHOLESTATIC [None]
  - INFLAMMATION [None]
  - CYTOLYTIC HEPATITIS [None]
